FAERS Safety Report 8517646-1 (Version None)
Quarter: 2012Q3

REPORT INFORMATION
  Report Type: 
  Country: None (occurrence: None)
  Receive Date: 20120718
  Receipt Date: 20120712
  Transmission Date: 20120928
  Serious: Yes (Death, Hospitalization, Other)
  Sender: FDA-Public Use
  Company Number: US-AMGEN-USASP2011007694

PATIENT
  Age: 79 Year
  Sex: Female
  Weight: 53.878 kg

DRUGS (27)
  1. ENBREL [Suspect]
     Dosage: 50 MG, QWK
     Route: 058
  2. KETOCONAZOLE [Concomitant]
     Dosage: UNK UNK, 2 TIMES/WK
     Route: 061
  3. MULTI-VITAMINS [Concomitant]
     Dosage: UNK UNK, QD
     Route: 048
  4. PREDNISONE [Concomitant]
     Dosage: 4 MG, QD
     Route: 048
  5. SPIRONOLACTONE [Concomitant]
     Dosage: 50 MG, QD
  6. NEXIUM [Concomitant]
     Dosage: G
     Route: 048
  7. VITAMIN D [Concomitant]
     Dosage: 1000 IU, QD
     Route: 048
  8. ASPIRIN [Concomitant]
     Dosage: 325 MG, QD
     Route: 048
  9. CALCIUM D3 [Concomitant]
     Dosage: UNK
  10. ARAVA [Concomitant]
     Dosage: 20 MG, QD
     Route: 048
  11. GLUCOCORTICOIDS [Concomitant]
     Dosage: UNK
  12. ENBREL [Suspect]
     Indication: RHEUMATOID ARTHRITIS
     Dosage: 50 MG, QWK
     Route: 058
     Dates: start: 20090914, end: 20100423
  13. PREDNISONE [Concomitant]
     Dosage: 3 MG, QD
     Route: 048
  14. GARLIC [Concomitant]
     Dosage: 500 MG, QOD
     Route: 048
  15. GLUCOSAMINE SULFATE [Concomitant]
     Dosage: 500 MG, QD
     Route: 048
  16. TERIPARATIDE [Concomitant]
     Dosage: 1 MUG, UNK
  17. POTASSIUM 99 [Concomitant]
     Dosage: 99 MG, QD
     Route: 048
  18. METOPROLOL SUCCINATE [Concomitant]
     Dosage: 1 MG, BID
  19. LEVOTHYROXINE SODIUM [Concomitant]
     Dosage: 1 MUG, UNK
     Route: 048
  20. VIACTIV CALCIUM PLUS VITAMIN D + K [Concomitant]
     Dosage: UNK UNK, QD
     Route: 048
  21. METOPROLOL TARTRATE [Concomitant]
     Dosage: 100 MG, BID
  22. FORTEO [Concomitant]
     Dosage: 20 MUG, QD
     Dates: start: 20100823
  23. ADALIMUMAB [Concomitant]
     Dosage: UNK
  24. LIPITOR [Concomitant]
     Dosage: 40 MG, QD
  25. VITAMIN D [Concomitant]
     Dosage: UNK UNK, QD
  26. IRON [Concomitant]
     Dosage: 1 MG, QD
     Route: 048
  27. BOOST [Concomitant]
     Dosage: UNK UNK, QD

REACTIONS (18)
  - HYPOALBUMINAEMIA [None]
  - RENAL FAILURE [None]
  - PRODUCTIVE COUGH [None]
  - SLEEP DISORDER [None]
  - FATIGUE [None]
  - PLEURAL EFFUSION [None]
  - ADENOSQUAMOUS CELL LUNG CANCER STAGE IV [None]
  - PNEUMONIA [None]
  - PNEUMOTHORAX [None]
  - BACK PAIN [None]
  - OEDEMA PERIPHERAL [None]
  - DEATH [None]
  - WEIGHT DECREASED [None]
  - METASTASES TO LIVER [None]
  - METASTASES TO BONE [None]
  - MILIA [None]
  - DECREASED APPETITE [None]
  - HYDROPNEUMOTHORAX [None]
